FAERS Safety Report 13996059 (Version 1)
Quarter: 2017Q3

REPORT INFORMATION
  Report Type: Spontaneous
  Country: US (occurrence: US)
  Receive Date: 20170921
  Receipt Date: 20170921
  Transmission Date: 20171128
  Serious: No
  Sender: FDA-Public Use
  Company Number: US-AMARIN PHARMA, INC.-2016AMR000239

PATIENT
  Sex: Male

DRUGS (1)
  1. VASCEPA [Suspect]
     Active Substance: ICOSAPENT ETHYL
     Indication: HYPERTRIGLYCERIDAEMIA

REACTIONS (1)
  - Blood uric acid increased [Unknown]
